FAERS Safety Report 18717187 (Version 1)
Quarter: 2021Q1

REPORT INFORMATION
  Report Type: Spontaneous
  Country: US (occurrence: US)
  Receive Date: 20210108
  Receipt Date: 20210108
  Transmission Date: 20210419
  Serious: Yes (Life-Threatening, Hospitalization)
  Sender: FDA-Public Use
  Company Number: US-MYLANLABS-2021M1000293

PATIENT
  Age: 61 Year
  Sex: Male

DRUGS (1)
  1. SEVELAMER [Suspect]
     Active Substance: SEVELAMER
     Indication: SUPPORTIVE CARE
     Dosage: 800 MILLIGRAM, TID
     Route: 065

REACTIONS (2)
  - Pneumoperitoneum [Recovering/Resolving]
  - Large intestine perforation [Recovering/Resolving]
